FAERS Safety Report 4951226-X (Version None)
Quarter: 2006Q1

REPORT INFORMATION
  Report Type: 
  Country: None (occurrence: None)
  Receive Date: 20060316
  Receipt Date: 20060306
  Transmission Date: 20060701
  Serious: No
  Sender: FDA-Public Use
  Company Number: 2006-139492-NL

PATIENT
  Age: 54 Year
  Sex: Male

DRUGS (18)
  1. MIRTAZAPINE [Suspect]
     Dosage: 15 MG QD
     Route: 048
     Dates: start: 20060220, end: 20060221
  2. VANCOMYCIN [Concomitant]
  3. FUSIDIC ACID [Concomitant]
  4. ZINC [Concomitant]
  5. HEPARIN [Concomitant]
  6. DOCUSATE [Concomitant]
  7. SENNA [Concomitant]
  8. ACETYLSALICYLIC ACID SRT [Concomitant]
  9. NYSTATIN [Concomitant]
  10. SELENIUM SULFIDE [Concomitant]
  11. SALBUTAMOL [Concomitant]
  12. THIAMINE [Concomitant]
  13. SIMVASTATIN [Concomitant]
  14. RAMIPRIL [Concomitant]
  15. AMLODIPINE [Concomitant]
  16. METOPROLOL [Concomitant]
  17. SODIUM CHLORIDE [Concomitant]
  18. DALIVIT [Concomitant]

REACTIONS (1)
  - DYSTONIA [None]
